FAERS Safety Report 5200970-8 (Version None)
Quarter: 2007Q1

REPORT INFORMATION
  Report Type: 
  Country: None (occurrence: None)
  Receive Date: 20070103
  Receipt Date: 20061222
  Transmission Date: 20070707
  Serious: Yes (Hospitalization)
  Sender: FDA-Public Use
  Company Number: 2006-06314

PATIENT
  Age: 36 Year
  Sex: Female

DRUGS (1)
  1. TRELSTAR DEPOT [Suspect]
     Indication: INFERTILITY
     Dates: start: 20061004

REACTIONS (7)
  - HAEMOLYTIC ANAEMIA [None]
  - OVARIAN ENLARGEMENT [None]
  - OVARIAN HYPERSTIMULATION SYNDROME [None]
  - PELVIC FLUID COLLECTION [None]
  - RENAL FAILURE ACUTE [None]
  - THROMBOCYTOPENIA [None]
  - VOMITING [None]
